FAERS Safety Report 8785620 (Version 2)
Quarter: 2012Q4

REPORT INFORMATION
  Report Type: Report from Study
  Country: JP (occurrence: JP)
  Receive Date: 20120914
  Receipt Date: 20121114
  Transmission Date: 20130627
  Serious: Yes (Other)
  Sender: FDA-Public Use
  Company Number: JP-VERTEX PHARMACEUTICAL INC.-2012-020932

PATIENT
  Age: 63 Year
  Sex: Female

DRUGS (17)
  1. VX-950 (TELAPREVIR) [Suspect]
     Indication: CHRONIC HEPATITIS C
     Dosage: 1500 mg, qd
     Route: 048
     Dates: start: 20120313, end: 20120424
  2. VX-950 (TELAPREVIR) [Suspect]
     Dosage: 750 mg, qd
     Route: 048
     Dates: end: 20120424
  3. VX-950 (TELAPREVIR) [Suspect]
     Dosage: 250 mg, qd
     Route: 048
     Dates: start: 20120508, end: 20120514
  4. VX-950 (TELAPREVIR) [Suspect]
     Dosage: 750 mg, qd
     Route: 048
     Dates: start: 20120515, end: 20120604
  5. PEGINTRON                          /01543001/ [Suspect]
     Indication: CHRONIC HEPATITIS C
     Dosage: 1.5 ?g/kg, qw
     Route: 058
     Dates: start: 20120313, end: 20120327
  6. PEGINTRON                          /01543001/ [Suspect]
     Dosage: 0.7 ?g/kg, qw
     Route: 058
     Dates: start: 20120403, end: 20120410
  7. PEGINTRON                          /01543001/ [Suspect]
     Dosage: 1.1 ?g/kg, qw
     Route: 058
     Dates: start: 20120417, end: 20120417
  8. PEGINTRON                          /01543001/ [Suspect]
     Dosage: 0.6 ?g/kg, qw
     Route: 058
     Dates: start: 20120501, end: 20120508
  9. PEGINTRON                          /01543001/ [Suspect]
     Dosage: 1.1 ?g/kg, qw
     Route: 058
     Dates: start: 20120515
  10. PEGINTRON                          /01543001/ [Suspect]
     Dosage: 1.2 ?g/kg, qw
     Route: 058
     Dates: end: 20120710
  11. PEGINTRON                          /01543001/ [Suspect]
     Dosage: 0.7 ?g/kg, qw
     Route: 058
     Dates: start: 20120717, end: 20120828
  12. REBETOL [Suspect]
     Indication: CHRONIC HEPATITIS C
     Dosage: 600 mg, qd
     Route: 048
     Dates: start: 20120313, end: 20120424
  13. REBETOL [Suspect]
     Dosage: 400 mg, qd
     Route: 048
     Dates: start: 20120508, end: 20120618
  14. REBETOL [Suspect]
     Dosage: 600 mg, qd
     Route: 048
     Dates: start: 20120619, end: 20120702
  15. REBETOL [Suspect]
     Dosage: 400 mg, qd
     Route: 048
     Dates: start: 20120703, end: 20120903
  16. HIRUDOID                           /00723701/ [Concomitant]
     Dosage: 2 g, qd
     Route: 061
  17. ACINON [Concomitant]
     Dosage: 300 mg, qd
     Route: 048
     Dates: start: 20120417

REACTIONS (1)
  - Retinopathy [Not Recovered/Not Resolved]
